FAERS Safety Report 10596720 (Version 1)
Quarter: 2014Q4

REPORT INFORMATION
  Report Type: Spontaneous
  Country: US (occurrence: US)
  Receive Date: 20141120
  Receipt Date: 20141120
  Transmission Date: 20150529
  Serious: No
  Sender: FDA-Public Use
  Company Number: US-009507513-1411USA004777

PATIENT
  Age: 3 Year
  Sex: Male

DRUGS (2)
  1. COPPERTONE WATER BABIES SPF 50 [Suspect]
     Active Substance: AVOBENZONE\HOMOSALATE\OCTISALATE\OCTOCRYLENE\OXYBENZONE
     Dosage: UNK, PRN
     Route: 061
  2. COPPERTONE WATER BABIES SPF 50 [Suspect]
     Active Substance: AVOBENZONE\HOMOSALATE\OCTISALATE\OCTOCRYLENE\OXYBENZONE
     Indication: PROPHYLAXIS
     Dosage: UNK, ONCE
     Route: 061
     Dates: start: 20140713, end: 20140713

REACTIONS (11)
  - Eye disorder [Unknown]
  - Skin swelling [Unknown]
  - Erythema [Unknown]
  - Eye pain [Unknown]
  - Eyelid oedema [Unknown]
  - Crying [Unknown]
  - Erythema of eyelid [Unknown]
  - Exposure via direct contact [Unknown]
  - Ocular hyperaemia [Unknown]
  - Eye irritation [Unknown]
  - Product quality issue [Unknown]

NARRATIVE: CASE EVENT DATE: 20140713
